FAERS Safety Report 4591705-0 (Version None)
Quarter: 2005Q1

REPORT INFORMATION
  Report Type: 
  Country: None (occurrence: None)
  Receive Date: 20050222
  Receipt Date: 20041112
  Transmission Date: 20050727
  Serious: Yes (Death, Hospitalization)
  Sender: FDA-Public Use
  Company Number: 2004238366CA

PATIENT
  Age: 83 Year
  Sex: Male
  Weight: 74.8435 kg

DRUGS (5)
  1. CELEBREX [Suspect]
     Indication: ARTHRITIS
     Dosage: 200 MG (200 MG, 1 IN 1 D), ORAL
     Route: 048
     Dates: start: 20040712, end: 20040722
  2. METOPROLOL TARTRATE [Concomitant]
  3. ENALAPRIL MALEATE [Concomitant]
  4. HYDROCHLOROTHIAZIDE [Concomitant]
  5. ASPIRIN [Concomitant]

REACTIONS (6)
  - ANOREXIA [None]
  - ASTHENIA [None]
  - CIRCULATORY COLLAPSE [None]
  - FATIGUE [None]
  - FEELING ABNORMAL [None]
  - PULMONARY THROMBOSIS [None]
